FAERS Safety Report 23857952 (Version 1)
Quarter: 2024Q2

REPORT INFORMATION
  Report Type: Spontaneous
  Country: FR (occurrence: FR)
  Receive Date: 20240515
  Receipt Date: 20240515
  Transmission Date: 20240716
  Serious: Yes (Other)
  Sender: FDA-Public Use
  Company Number: FR-RECORDATI-2023002829

PATIENT

DRUGS (2)
  1. OSILODROSTAT [Suspect]
     Active Substance: OSILODROSTAT
     Indication: Cushing^s syndrome
     Dosage: 2 MILLIGRAM DAILY AT THE TIME OF INTERRUPTION
  2. OSILODROSTAT [Suspect]
     Active Substance: OSILODROSTAT
     Dosage: 2 MILLIGRAM DAILY

REACTIONS (3)
  - Adrenal insufficiency [Recovered/Resolved]
  - Rash [Unknown]
  - Therapeutic product effect prolonged [Recovered/Resolved]
